FAERS Safety Report 9569091 (Version 2)
Quarter: 2014Q1

REPORT INFORMATION
  Report Type: Spontaneous
  Country: US (occurrence: US)
  Receive Date: 20130930
  Receipt Date: 20140303
  Transmission Date: 20141002
  Serious: No
  Sender: FDA-Public Use
  Company Number: US-AMGEN-USASP2013060261

PATIENT
  Age: 26 Year
  Sex: Female
  Weight: 42.63 kg

DRUGS (1)
  1. ENBREL [Suspect]
     Indication: PSORIASIS
     Dosage: 50 MG, QWK
     Route: 065
     Dates: start: 20040101, end: 2009

REACTIONS (2)
  - Skin plaque [Not Recovered/Not Resolved]
  - Skin ulcer [Not Recovered/Not Resolved]
